FAERS Safety Report 4482274-4 (Version None)
Quarter: 2004Q4

REPORT INFORMATION
  Report Type: 
  Country: None (occurrence: None)
  Receive Date: 20041020
  Receipt Date: 20040929
  Transmission Date: 20050328
  Serious: Yes (Other)
  Sender: FDA-Public Use
  Company Number: USA040979634

PATIENT
  Sex: Female

DRUGS (2)
  1. CYMBALTA [Suspect]
     Dosage: 60 MG/1 DAY
     Dates: start: 20040922
  2. LEVAQUIN [Concomitant]

REACTIONS (3)
  - DRUG INTERACTION [None]
  - SYNCOPE [None]
  - TACHYCARDIA [None]
